FAERS Safety Report 4974013-5 (Version None)
Quarter: 2006Q2

REPORT INFORMATION
  Report Type: 
  Country: None (occurrence: None)
  Receive Date: 20060410
  Receipt Date: 20060331
  Transmission Date: 20061013
  Serious: Yes (Hospitalization)
  Sender: FDA-Public Use
  Company Number: 200611338GDS

PATIENT
  Age: 67 Year
  Sex: Female

DRUGS (8)
  1. ASPIRIN [Suspect]
     Indication: MYOCARDIAL ISCHAEMIA
     Dosage: 100 MG, QD, ORAL
     Route: 048
     Dates: start: 20030101, end: 20060307
  2. ETIZOLAM [Concomitant]
  3. ACTRAPID [Concomitant]
  4. GLUCOPHAGE [Concomitant]
  5. ENAPREN [Concomitant]
  6. SONATA [Concomitant]
  7. EUTIROX [Concomitant]
  8. FEMARA [Concomitant]

REACTIONS (2)
  - GASTROINTESTINAL HAEMORRHAGE [None]
  - VASCULAR ANOMALY [None]
